FAERS Safety Report 23170540 (Version 1)
Quarter: 2023Q4

REPORT INFORMATION
  Report Type: Report from Study
  Country: US (occurrence: US)
  Receive Date: 20231110
  Receipt Date: 20231110
  Transmission Date: 20240110
  Serious: Yes (Other)
  Sender: FDA-Public Use
  Company Number: US-ALXN-A202312906AA

PATIENT
  Sex: Female

DRUGS (3)
  1. STRENSIQ [Suspect]
     Active Substance: ASFOTASE ALFA
     Indication: Hypophosphatasia
     Dosage: UNK
     Route: 065
  2. RITUXAN [Concomitant]
     Active Substance: RITUXIMAB
     Indication: Product used for unknown indication
     Dosage: UNK, UNK, Q3W
     Route: 042
  3. HUMAN IMMUNOGLOBULIN G [Concomitant]
     Active Substance: HUMAN IMMUNOGLOBULIN G
     Indication: Product used for unknown indication
     Dosage: UNK,UNK, EVERY FOUR TO FIVE WEEKS
     Route: 065

REACTIONS (13)
  - Sarcoidosis [Unknown]
  - Femur fracture [Unknown]
  - Congenital syphilitic osteochondritis [Unknown]
  - Immunosuppression [Unknown]
  - Lower limb fracture [Unknown]
  - Diplopia [Unknown]
  - Eyelid ptosis [Unknown]
  - Impaired healing [Unknown]
  - Headache [Not Recovered/Not Resolved]
  - Stress fracture [Unknown]
  - Foot fracture [Unknown]
  - Injection site pain [Unknown]
  - Pain in extremity [Recovering/Resolving]
